FAERS Safety Report 5241287-5 (Version None)
Quarter: 2007Q1

REPORT INFORMATION
  Report Type: 
  Country: None (occurrence: None)
  Receive Date: 20070220
  Receipt Date: 20070208
  Transmission Date: 20070707
  Serious: Yes (Hospitalization)
  Sender: FDA-Public Use
  Company Number: FR-JNJFOC-20070202446

PATIENT
  Age: 56 Year
  Sex: Female

DRUGS (4)
  1. HALDOL [Suspect]
     Indication: SCHIZOPHRENIA
     Route: 065
  2. LEPTICUR [Concomitant]
     Indication: PARKINSONISM
     Route: 065
  3. SULFARLEM [Concomitant]
     Indication: SALIVA ALTERED
     Route: 065
  4. XANAX [Concomitant]
     Route: 065

REACTIONS (3)
  - AKINESIA [None]
  - EXTRAPYRAMIDAL DISORDER [None]
  - HYPERTONIA [None]
